FAERS Safety Report 18730448 (Version 1)
Quarter: 2021Q1

REPORT INFORMATION
  Report Type: Spontaneous
  Country: PL (occurrence: PL)
  Receive Date: 20210112
  Receipt Date: 20210112
  Transmission Date: 20210419
  Serious: Yes (Other)
  Sender: FDA-Public Use
  Company Number: PL-PFIZER INC-2021009152

PATIENT
  Age: 61 Year
  Sex: Female
  Weight: 71 kg

DRUGS (1)
  1. SUTENT [Suspect]
     Active Substance: SUNITINIB MALATE
     Indication: RENAL CELL CARCINOMA
     Route: 048

REACTIONS (17)
  - Diarrhoea [Unknown]
  - Nausea [Unknown]
  - Insomnia [Unknown]
  - Neutropenia [Unknown]
  - Back pain [Unknown]
  - Oral discomfort [Unknown]
  - Upper respiratory tract infection bacterial [Unknown]
  - Spine malformation [Unknown]
  - Alanine aminotransferase increased [Unknown]
  - Contusion [Unknown]
  - Blood pressure increased [Unknown]
  - Anaemia [Unknown]
  - Leukopenia [Unknown]
  - Chronic kidney disease [Unknown]
  - Aspartate aminotransferase increased [Unknown]
  - Thrombocytopenia [Unknown]
  - Hypothyroidism [Unknown]
